FAERS Safety Report 9786592 (Version 1)
Quarter: 2013Q4

REPORT INFORMATION
  Report Type: Spontaneous
  Country: US (occurrence: US)
  Receive Date: 20131227
  Receipt Date: 20131227
  Transmission Date: 20140711
  Serious: No
  Sender: FDA-Public Use
  Company Number: US-PFIZER INC-2013368806

PATIENT
  Sex: Female

DRUGS (10)
  1. LIPITOR [Suspect]
     Dosage: UNK
  2. OGEN [Suspect]
     Dosage: UNK
  3. PROVERA [Suspect]
     Dosage: UNK
  4. VICTOZA [Suspect]
     Dosage: UNK
  5. ABILIFY [Suspect]
     Dosage: UNK
  6. CYMBALTA [Suspect]
     Dosage: UNK
  7. DIOVAN [Suspect]
     Dosage: UNK
  8. LEXAPRO [Suspect]
     Dosage: UNK
  9. POTASSIUM [Suspect]
     Dosage: UNK
  10. SYNTHROID [Suspect]
     Dosage: UNK

REACTIONS (1)
  - Speech disorder [Unknown]
